FAERS Safety Report 8019900-9 (Version None)
Quarter: 2012Q1

REPORT INFORMATION
  Report Type: 
  Country: None (occurrence: None)
  Receive Date: 20120103
  Receipt Date: 20111228
  Transmission Date: 20120608
  Serious: Yes (Death, Other)
  Sender: FDA-Public Use
  Company Number: GB-GENZYME-CLOF-1001989

PATIENT
  Sex: Female

DRUGS (1)
  1. EVOLTRA [Suspect]
     Indication: ACUTE MYELOID LEUKAEMIA
     Dosage: LOW-DOSE
     Route: 065
     Dates: start: 20090430, end: 20090504

REACTIONS (2)
  - ACUTE MYELOID LEUKAEMIA [None]
  - WEIGHT DECREASED [None]
